FAERS Safety Report 5445772-2 (Version None)
Quarter: 2007Q3

REPORT INFORMATION
  Report Type: 
  Country: None (occurrence: None)
  Receive Date: 20070904
  Receipt Date: 20070822
  Transmission Date: 20080115
  Serious: Yes (Other)
  Sender: FDA-Public Use
  Company Number: CHNY2007AU02932

PATIENT
  Sex: Female

DRUGS (1)
  1. PENCICLOVIR [Suspect]
     Dosage: SINGLE APPLICATION, TOPICAL
     Route: 061

REACTIONS (2)
  - LIP SWELLING [None]
  - TONGUE BLISTERING [None]
